FAERS Safety Report 20893855 (Version 1)
Quarter: 2022Q2

REPORT INFORMATION
  Report Type: Spontaneous
  Country: US (occurrence: None)
  Receive Date: 20220527
  Receipt Date: 20220527
  Transmission Date: 20220721
  Serious: Yes (Disabling)
  Sender: FDA-Public Use
  Company Number: None

PATIENT
  Age: 61 Year
  Sex: Female
  Weight: 78.75 kg

DRUGS (12)
  1. PAXLOVID [Suspect]
     Active Substance: NIRMATRELVIR\RITONAVIR
     Indication: COVID-19
     Dosage: OTHER QUANTITY : 3 TABLET(S);?FREQUENCY : EVERY 12 HOURS;?
     Route: 048
  2. LIPITOR [Concomitant]
     Active Substance: ATORVASTATIN CALCIUM
  3. DEVICE [Concomitant]
     Active Substance: DEVICE
  4. LISINOPRIL [Concomitant]
     Active Substance: LISINOPRIL
  5. HYDROCHLOROTHIAZIDE [Concomitant]
     Active Substance: HYDROCHLOROTHIAZIDE
  6. nortryptiline [Concomitant]
  7. LEXAPRO [Concomitant]
     Active Substance: ESCITALOPRAM OXALATE
  8. CALCIUM [Concomitant]
     Active Substance: CALCIUM
  9. ZINC [Concomitant]
     Active Substance: ZINC
  10. VITAMIN C [Concomitant]
     Active Substance: ASCORBIC ACID
  11. VITAMINS [Concomitant]
     Active Substance: VITAMINS
  12. MUCINEX [Concomitant]
     Active Substance: GUAIFENESIN

REACTIONS (2)
  - COVID-19 [None]
  - Rebound effect [None]

NARRATIVE: CASE EVENT DATE: 20220515
